FAERS Safety Report 24409568 (Version 2)
Quarter: 2025Q1

REPORT INFORMATION
  Report Type: Spontaneous
  Country: CA (occurrence: CA)
  Receive Date: 20241008
  Receipt Date: 20250325
  Transmission Date: 20250408
  Serious: Yes (Other)
  Sender: ACCORD
  Company Number: None

PATIENT
  Age: 77 Year
  Sex: Female

DRUGS (13)
  1. ONDANSETRON [Suspect]
     Active Substance: ONDANSETRON
     Indication: Product used for unknown indication
  2. PIOGLITAZONE HYDROCHLORIDE [Suspect]
     Active Substance: PIOGLITAZONE HYDROCHLORIDE
     Indication: Product used for unknown indication
  3. PANTOPRAZOLE [Suspect]
     Active Substance: PANTOPRAZOLE
     Indication: Product used for unknown indication
  4. ALOGLIPTIN [Suspect]
     Active Substance: ALOGLIPTIN
     Indication: Product used for unknown indication
     Route: 065
  5. ALOGLIPTIN BENZOATE\METFORMIN HYDROCHLORIDE [Suspect]
     Active Substance: ALOGLIPTIN BENZOATE\METFORMIN HYDROCHLORIDE
     Indication: Product used for unknown indication
     Route: 065
  6. ROFLUMILAST [Suspect]
     Active Substance: ROFLUMILAST
     Indication: Product used for unknown indication
     Route: 065
  7. DEXLANSOPRAZOLE [Suspect]
     Active Substance: DEXLANSOPRAZOLE
     Indication: Product used for unknown indication
     Route: 065
  8. AZILSARTAN MEDOXOMIL\CHLORTHALIDONE [Suspect]
     Active Substance: AZILSARTAN MEDOXOMIL\CHLORTHALIDONE
     Indication: Product used for unknown indication
     Route: 065
  9. VEDOLIZUMAB [Suspect]
     Active Substance: VEDOLIZUMAB
     Indication: Colitis ulcerative
     Route: 042
  10. FIBRINOGEN HUMAN\HUMAN THROMBIN [Suspect]
     Active Substance: FIBRINOGEN HUMAN\HUMAN THROMBIN
     Indication: Product used for unknown indication
     Route: 065
  11. CICLESONIDE [Suspect]
     Active Substance: CICLESONIDE
     Indication: Product used for unknown indication
     Route: 065
  12. PANTOPRAZOLE MAGNESIUM [Suspect]
     Active Substance: PANTOPRAZOLE MAGNESIUM
     Indication: Product used for unknown indication
  13. FEBUXOSTAT [Suspect]
     Active Substance: FEBUXOSTAT
     Indication: Product used for unknown indication
     Route: 065

REACTIONS (3)
  - Disease recurrence [Recovered/Resolved]
  - Hypertension [Recovered/Resolved]
  - Pneumonia [Recovered/Resolved]
